FAERS Safety Report 24276342 (Version 1)
Quarter: 2024Q3

REPORT INFORMATION
  Report Type: Spontaneous
  Country: US (occurrence: US)
  Receive Date: 20240903
  Receipt Date: 20240903
  Transmission Date: 20241016
  Serious: No
  Sender: JOHNSON AND JOHNSON
  Company Number: US-JNJFOC-20240872341

PATIENT
  Age: 14 Year
  Sex: Male

DRUGS (8)
  1. RISPERDAL [Suspect]
     Active Substance: RISPERIDONE
     Indication: Aggression
     Dosage: VARYING DOSES OF 0.5 MG AND 1 MG WITH VARYING FREQUENCY OF TWICE AND THRICE DAILY
     Route: 048
     Dates: start: 201406
  2. RISPERDAL [Suspect]
     Active Substance: RISPERIDONE
     Indication: Depressed mood
  3. RISPERDAL [Suspect]
     Active Substance: RISPERIDONE
     Indication: Psychotic symptom
  4. RISPERDAL [Suspect]
     Active Substance: RISPERIDONE
     Indication: Sleep disorder
  5. RISPERDAL [Suspect]
     Active Substance: RISPERIDONE
     Indication: Affective disorder
  6. RISPERDAL [Suspect]
     Active Substance: RISPERIDONE
     Indication: Anger
  7. RISPERDAL [Suspect]
     Active Substance: RISPERIDONE
     Indication: Agitation
  8. RISPERDAL [Suspect]
     Active Substance: RISPERIDONE
     Indication: Irritability

REACTIONS (4)
  - Gynaecomastia [Unknown]
  - Weight increased [Not Recovered/Not Resolved]
  - Therapeutic product effect decreased [Unknown]
  - Off label use [Unknown]

NARRATIVE: CASE EVENT DATE: 20141101
